FAERS Safety Report 4643291-4 (Version None)
Quarter: 2005Q2

REPORT INFORMATION
  Report Type: 
  Country: None (occurrence: None)
  Receive Date: 20050422
  Receipt Date: 20050411
  Transmission Date: 20051028
  Serious: Yes (Hospitalization)
  Sender: FDA-Public Use
  Company Number: 200510478BCC

PATIENT
  Age: 72 Year
  Sex: Female
  Weight: 68.0396 kg

DRUGS (5)
  1. ALKA SELTZER PLUS COLD EFFERVESCENT [Suspect]
     Indication: HYPERSENSITIVITY
     Dosage: SEE IMAGE, ORAL
     Route: 048
  2. ALKA SELTZER PLUS COLD EFFERVESCENT [Suspect]
     Indication: HYPERSENSITIVITY
     Dosage: SEE IMAGE, ORAL
     Route: 048
     Dates: start: 20050301
  3. SYNTHYROID [Concomitant]
  4. ACTONEL [Concomitant]
  5. PEPCID [Concomitant]

REACTIONS (2)
  - FEELING ABNORMAL [None]
  - LABORATORY TEST ABNORMAL [None]
